FAERS Safety Report 7712250-7 (Version None)
Quarter: 2011Q3

REPORT INFORMATION
  Report Type: 
  Country: None (occurrence: None)
  Receive Date: 20110826
  Receipt Date: 20110819
  Transmission Date: 20111222
  Serious: Yes (Other)
  Sender: FDA-Public Use
  Company Number: CA-PFIZER INC-2011192148

PATIENT
  Age: 82 Year
  Sex: Female

DRUGS (2)
  1. XALATAN [Suspect]
     Indication: GLAUCOMA
     Dosage: UNK
     Route: 047
  2. XALATAN [Suspect]
     Dosage: ONE DROP IN BOTH EYES, ONCE DAILY
     Route: 047
     Dates: start: 20100101

REACTIONS (1)
  - MACULAR DEGENERATION [None]
